FAERS Safety Report 15670509 (Version 4)
Quarter: 2020Q2

REPORT INFORMATION
  Report Type: Spontaneous
  Country: JP (occurrence: JP)
  Receive Date: 20181129
  Receipt Date: 20200420
  Transmission Date: 20200713
  Serious: Yes (Death)
  Sender: FDA-Public Use
  Company Number: JP-ASTRAZENECA-2018SF54516

PATIENT
  Age: 90 Year
  Sex: Male
  Weight: 46.1 kg

DRUGS (10)
  1. ACARBOSE. [Concomitant]
     Active Substance: ACARBOSE
     Route: 048
  2. VONOPRAZAN FUMARATE [Concomitant]
     Active Substance: VONOPRAZAN FUMARATE
     Route: 048
  3. GEFITINIB. [Suspect]
     Active Substance: GEFITINIB
     Indication: LUNG ADENOCARCINOMA
     Route: 048
  4. SILODOSIN. [Concomitant]
     Active Substance: SILODOSIN
     Route: 048
  5. SENNOSIDE [Concomitant]
     Active Substance: SENNOSIDES
     Route: 048
  6. TENELIGLIPTIN HYDROBROMIDE HYDRATE [Concomitant]
     Active Substance: TENELIGLIPTIN HYDROBROMIDE HYDRATE
     Route: 048
  7. BETAHISTINE MESILATE [Concomitant]
     Active Substance: BETAHISTINE MESILATE
     Route: 048
  8. MAGNESIUM OXIDE. [Concomitant]
     Active Substance: MAGNESIUM OXIDE
     Route: 048
  9. GEFITINIB. [Suspect]
     Active Substance: GEFITINIB
     Indication: LUNG ADENOCARCINOMA
     Route: 048
  10. CILOSTAZOL. [Concomitant]
     Active Substance: CILOSTAZOL
     Route: 048

REACTIONS (3)
  - Primary effusion lymphoma [Fatal]
  - B-cell lymphoma [Fatal]
  - Interstitial lung disease [Fatal]
